FAERS Safety Report 9034452 (Version 1)
Quarter: 2013Q1

REPORT INFORMATION
  Report Type: Spontaneous
  Country: ZA (occurrence: None)
  Receive Date: 20130111
  Receipt Date: 20130111
  Transmission Date: 20140127
  Serious: Yes (Hospitalization)
  Sender: FDA-Public Use
  Company Number: DSA_61074_2012

PATIENT
  Age: 40 Year
  Sex: Male

DRUGS (3)
  1. BUPROPION HYDROCHLORIDE (BUPROPION HYDROCHLORIDE 150 MG [Suspect]
     Indication: SMOKING CESSATION THERAPY
     Route: 048
     Dates: start: 20121010, end: 20121102
  2. VARENICLINE TARTRATE (VARENICLINE TARTRATE) [Suspect]
     Indication: SMOKING CESSATION THERAPY
     Route: 048
     Dates: start: 20121010, end: 20121102
  3. GUARDIAN NICOTINE PATCHES (NICOTINE PATCH (NOT SPECIFIED) [Suspect]
     Indication: SMOKING CESSATION THERAPY
     Dosage: (DF)
     Route: 062
     Dates: start: 20121017, end: 20121102

REACTIONS (13)
  - Stress [None]
  - Neck pain [None]
  - Suicidal ideation [None]
  - Confusional state [None]
  - Post-traumatic stress disorder [None]
  - Headache [None]
  - Insomnia [None]
  - Major depression [None]
  - Drug abuse [None]
  - Borderline personality disorder [None]
  - Antisocial personality disorder [None]
  - Activities of daily living impaired [None]
  - Alcohol poisoning [None]
